FAERS Safety Report 11592901 (Version 1)
Quarter: 2015Q4

REPORT INFORMATION
  Report Type: Report from Study
  Country: BR (occurrence: BR)
  Receive Date: 20151005
  Receipt Date: 20151005
  Transmission Date: 20160304
  Serious: Yes (Other)
  Sender: FDA-Public Use
  Company Number: PHHY2015BR112069

PATIENT
  Sex: Female
  Weight: 66 kg

DRUGS (1)
  1. ACLASTA [Suspect]
     Active Substance: ZOLEDRONIC ACID
     Indication: OSTEOPOROSIS
     Dosage: 1 DF, Q12MO
     Route: 042
     Dates: start: 201406

REACTIONS (12)
  - Spinal disorder [Recovered/Resolved]
  - Pyrexia [Recovered/Resolved]
  - Decreased appetite [Recovered/Resolved]
  - Asthenia [Recovered/Resolved]
  - Myalgia [Recovered/Resolved]
  - Injury [Recovered/Resolved]
  - Arthralgia [Recovered/Resolved]
  - Cholelithiasis [Recovered/Resolved]
  - Bone pain [Recovered/Resolved]
  - Loss of control of legs [Recovered/Resolved]
  - Pain [Recovered/Resolved]
  - Gallbladder polyp [Recovered/Resolved]
